FAERS Safety Report 12209515 (Version 1)
Quarter: 2016Q1

REPORT INFORMATION
  Report Type: Report from Study
  Country: TR (occurrence: TR)
  Receive Date: 20160324
  Receipt Date: 20160324
  Transmission Date: 20160526
  Serious: Yes (Hospitalization, Other)
  Sender: FDA-Public Use
  Company Number: TR-TAKEDA-2016TUS005177

PATIENT
  Age: 19 Month
  Sex: Female

DRUGS (1)
  1. COLCHICINE. [Suspect]
     Active Substance: COLCHICINE
     Indication: PRODUCT USED FOR UNKNOWN INDICATION
     Dosage: 0.13 MG/KG, UNK
     Route: 048

REACTIONS (2)
  - Product use issue [Unknown]
  - Toxicity to various agents [Recovered/Resolved]
